FAERS Safety Report 10486014 (Version 3)
Quarter: 2015Q1

REPORT INFORMATION
  Report Type: Spontaneous
  Country: IT (occurrence: IT)
  Receive Date: 20141001
  Receipt Date: 20150210
  Transmission Date: 20150720
  Serious: Yes (Death)
  Sender: FDA-Public Use
  Company Number: IT-ROCHE-1467757

PATIENT
  Age: 49 Year
  Sex: Male
  Weight: 73 kg

DRUGS (15)
  1. BENADON [Concomitant]
     Active Substance: PYRIDOXINE HYDROCHLORIDE
     Dosage: 300 MG GASTRO-RESISTANT TABLETS 10 TABLETS
     Route: 048
  2. ZELBORAF [Suspect]
     Active Substance: VEMURAFENIB
     Indication: MALIGNANT MELANOMA
     Dosage: 250-300 MG/DL
     Route: 048
     Dates: start: 20140809, end: 20140922
  3. SOLDESAM [Concomitant]
     Active Substance: DEXAMETHASONE
     Dosage: 8 MG/2 ML SOLUTION FOR INJECTION
     Route: 042
  4. GABAPENTIN. [Concomitant]
     Active Substance: GABAPENTIN
     Dosage: 300 MG HARD CAPSULES 50 CAPSULES
     Route: 048
  5. CYMBALTA [Concomitant]
     Active Substance: DULOXETINE HYDROCHLORIDE
     Dosage: 60 MG GASTRO-RESISTANT HARD CAPSULES 28 CAPSULES
     Route: 048
  6. CLEXANE [Concomitant]
     Active Substance: ENOXAPARIN SODIUM
     Dosage: 2000 I.U. AXA/0.2 ML SOLUTION FOR INJECTION
     Route: 058
  7. CARDIOASPIRIN [Concomitant]
     Active Substance: ASPIRIN
     Dosage: 100 MG GASTRO-RESISTANT TABLETS 30 TABLETS
     Route: 048
  8. TAVOR [Concomitant]
     Active Substance: LORAZEPAM
     Dosage: 1 MG TABLETS 20 TABLETS
     Route: 048
  9. ALLOPURINOLO [Concomitant]
     Active Substance: ALLOPURINOL
     Dosage: 300 MG TABLETS 30 TABLETS
     Route: 048
  10. CALCITROL [Concomitant]
     Active Substance: CALCITRIOL
     Dosage: 30 X 0.25 MCG CAPSULES IN A BOTTLE
     Route: 048
  11. FOLINA [Concomitant]
     Active Substance: FOLIC ACID
     Dosage: 5 MG SOFT CAPSULES 20 CAPSULES
     Route: 030
  12. NORVASC [Concomitant]
     Active Substance: AMLODIPINE BESYLATE
     Route: 048
  13. LANSOPRAZOLO [Concomitant]
     Active Substance: LANSOPRAZOLE
     Dosage: 30 MG GASTRO-RESISTANT HARD CAPSULES 14 CAPSULES
     Route: 048
  14. ATENOLOL. [Concomitant]
     Active Substance: ATENOLOL
     Route: 048
  15. MORPHINE HYDROCHLORIDE [Concomitant]
     Active Substance: MORPHINE HYDROCHLORIDE
     Dosage: 10 MG/ML SOLUTION FOR INJECTION
     Route: 042

REACTIONS (1)
  - Hypertriglyceridaemia [Fatal]

NARRATIVE: CASE EVENT DATE: 20140921
